FAERS Safety Report 13118461 (Version 5)
Quarter: 2017Q4

REPORT INFORMATION
  Report Type: Report from Study
  Country: US (occurrence: US)
  Receive Date: 20170116
  Receipt Date: 20171010
  Transmission Date: 20180320
  Serious: Yes (Hospitalization)
  Sender: FDA-Public Use
  Company Number: US-JNJFOC-20170112362

PATIENT
  Age: 63 Year
  Sex: Female

DRUGS (22)
  1. IMBRUVICA [Suspect]
     Active Substance: IBRUTINIB
     Indication: CHRONIC LYMPHOCYTIC LEUKAEMIA
     Route: 048
     Dates: start: 20161102
  2. VITAMIN B COMPLEX [Concomitant]
     Active Substance: CYANOCOBALAMIN\DEXPANTHENOL\NIACINAMIDE\PYRIDOXINE HYDROCHLORIDE\RIBOFLAVIN 5^-PHOSPHATE SODIUM\THIAMINE HYDROCHLORIDE\VITAMIN B COMPLEX
  3. KLONOPIN [Concomitant]
     Active Substance: CLONAZEPAM
  4. ASCORBIC ACID. [Concomitant]
     Active Substance: ASCORBIC ACID
  5. DIPROPHYLLINE [Concomitant]
     Active Substance: DYPHYLLINE
  6. VITAMIN D [Concomitant]
     Active Substance: CHOLECALCIFEROL
  7. CLARINEX [Concomitant]
     Active Substance: DESLORATADINE
  8. AZELASTINE. [Concomitant]
     Active Substance: AZELASTINE HYDROCHLORIDE
  9. DESLORATADINE. [Concomitant]
     Active Substance: DESLORATADINE
  10. FLUOXETINE [Concomitant]
     Active Substance: FLUOXETINE HYDROCHLORIDE
  11. IMBRUVICA [Suspect]
     Active Substance: IBRUTINIB
     Indication: CHRONIC LYMPHOCYTIC LEUKAEMIA
     Route: 048
     Dates: start: 20151107
  12. VALTREX [Concomitant]
     Active Substance: VALACYCLOVIR HYDROCHLORIDE
  13. CALCIUM CARBONATE. [Concomitant]
     Active Substance: CALCIUM CARBONATE
  14. HYDROXYZINE [Concomitant]
     Active Substance: HYDROXYZINE HYDROCHLORIDE
  15. ALBUTEROL. [Concomitant]
     Active Substance: ALBUTEROL
  16. OSCAL D [Concomitant]
     Active Substance: CALCIUM CARBONATE\CHOLECALCIFEROL
  17. TURMERIC [Concomitant]
     Active Substance: HERBALS\TURMERIC
  18. MAGNESIUM [Concomitant]
     Active Substance: MAGNESIUM
  19. LAMICTAL [Concomitant]
     Active Substance: LAMOTRIGINE
  20. VALACYCLOVIR HCL [Concomitant]
     Active Substance: VALACYCLOVIR HYDROCHLORIDE
  21. IMBRUVICA [Suspect]
     Active Substance: IBRUTINIB
     Indication: CHRONIC LYMPHOCYTIC LEUKAEMIA
     Route: 048
     Dates: start: 20160311
  22. CYMBALTA [Concomitant]
     Active Substance: DULOXETINE HYDROCHLORIDE

REACTIONS (6)
  - Anxiety [Unknown]
  - Fatigue [Not Recovered/Not Resolved]
  - Tooth infection [Unknown]
  - Cystitis [Recovered/Resolved]
  - Pollakiuria [Unknown]
  - Depression [Not Recovered/Not Resolved]

NARRATIVE: CASE EVENT DATE: 20170103
